FAERS Safety Report 22343954 (Version 1)
Quarter: 2023Q2

REPORT INFORMATION
  Report Type: Spontaneous
  Country: FR (occurrence: FR)
  Receive Date: 20230519
  Receipt Date: 20230519
  Transmission Date: 20230722
  Serious: Yes (Other)
  Sender: FDA-Public Use
  Company Number: FR-AFSSAPS-TO2023000878

PATIENT
  Age: 29 Year
  Sex: Female

DRUGS (2)
  1. SILDENAFIL [Suspect]
     Active Substance: SILDENAFIL
     Indication: Weight decreased
     Dosage: TWO TIMES A DAY
     Route: 048
     Dates: start: 202207, end: 202304
  2. SIBUTRAMINE [Suspect]
     Active Substance: SIBUTRAMINE
     Indication: Weight decreased
     Dosage: TWO TIMES A DAY
     Route: 048
     Dates: start: 202207, end: 202304

REACTIONS (3)
  - Chest pain [Recovered/Resolved]
  - Weight decreased [Recovering/Resolving]
  - Drug withdrawal syndrome [Recovering/Resolving]

NARRATIVE: CASE EVENT DATE: 20230418
